FAERS Safety Report 9154642 (Version 1)
Quarter: 2013Q1

REPORT INFORMATION
  Report Type: Spontaneous
  Country: US (occurrence: None)
  Receive Date: 20130308
  Receipt Date: 20130308
  Transmission Date: 20140127
  Serious: Yes (Hospitalization)
  Sender: FDA-Public Use
  Company Number: None

PATIENT
  Sex: Female
  Weight: 61 kg

DRUGS (2)
  1. BENDAMUSTINE [Suspect]
     Indication: B-CELL LYMPHOMA
     Dosage: 140-145MG 2 DAYS PER CYCLE IV
     Route: 042
     Dates: start: 20121025, end: 20130118
  2. RITUXIMAB [Suspect]
     Dosage: 580-610 MG 1 DAY PER CYCLE IV
     Route: 042
     Dates: start: 20121018, end: 20130117

REACTIONS (4)
  - Night sweats [None]
  - Pyrexia [None]
  - Dyspnoea [None]
  - Lobar pneumonia [None]
